FAERS Safety Report 8371218-0 (Version None)
Quarter: 2012Q2

REPORT INFORMATION
  Report Type: 
  Country: None (occurrence: None)
  Receive Date: 20120518
  Receipt Date: 20120508
  Transmission Date: 20120825
  Serious: Yes (Hospitalization)
  Sender: FDA-Public Use
  Company Number: US-ACTELION-A-NJ2012-65317

PATIENT

DRUGS (3)
  1. TRACLEER [Suspect]
     Indication: PULMONARY ARTERIAL HYPERTENSION
     Dosage: UNK
     Route: 048
     Dates: start: 20120405
  2. COUMADIN [Concomitant]
  3. DIGOXIN [Concomitant]

REACTIONS (4)
  - FALL [None]
  - HAEMORRHAGE [None]
  - SYNCOPE [None]
  - BLOOD TEST ABNORMAL [None]
